FAERS Safety Report 23737461 (Version 1)
Quarter: 2024Q2

REPORT INFORMATION
  Report Type: Spontaneous
  Country: US (occurrence: US)
  Receive Date: 20240412
  Receipt Date: 20240412
  Transmission Date: 20240716
  Serious: No
  Sender: FDA-Public Use
  Company Number: US-MYLANLABS-2024M1029715

PATIENT
  Age: 65 Year
  Sex: Female
  Weight: 68.04 kg

DRUGS (3)
  1. ERMEZA [Suspect]
     Active Substance: LEVOTHYROXINE SODIUM
     Indication: Thyroid hormone replacement therapy
     Dosage: 3 MILLILITER, QD (ONCE A DAY)
     Route: 048
  2. ALBUTEROL [Concomitant]
     Active Substance: ALBUTEROL
     Indication: Asthma
     Dosage: UNK
     Route: 065
  3. BREO ELLIPTA [Concomitant]
     Active Substance: FLUTICASONE FUROATE\VILANTEROL TRIFENATATE
     Indication: Asthma
     Dosage: UNK
     Route: 065

REACTIONS (6)
  - Eye swelling [Unknown]
  - Swelling of eyelid [Unknown]
  - Swollen tongue [Unknown]
  - Vision blurred [Unknown]
  - Eye pruritus [Unknown]
  - Hypersensitivity [Unknown]

NARRATIVE: CASE EVENT DATE: 20240301
